FAERS Safety Report 6170370-5 (Version None)
Quarter: 2009Q2

REPORT INFORMATION
  Report Type: 
  Country: None (occurrence: None)
  Receive Date: 20090427
  Receipt Date: 20090427
  Transmission Date: 20091009
  Serious: No
  Sender: FDA-Public Use
  Company Number: None

PATIENT
  Age: 70 Year
  Sex: Female
  Weight: 66.7 kg

DRUGS (17)
  1. WARFARIN SODIUM [Suspect]
     Indication: CARDIAC FAILURE CONGESTIVE
     Dosage: 13MG/WEEK (ORAL), (OUTPATIENT MED)
     Route: 048
  2. WARFARIN SODIUM [Suspect]
     Indication: VENTRICULAR ASSIST DEVICE INSERTION
     Dosage: 13MG/WEEK (ORAL), (OUTPATIENT MED)
     Route: 048
  3. ZETIA [Concomitant]
  4. VASOTEC [Concomitant]
  5. TOPROL-XL [Concomitant]
  6. ALLOPURINOL [Concomitant]
  7. ASPIRIN [Concomitant]
  8. CELEXA [Concomitant]
  9. COLCHICINE [Concomitant]
  10. DYPYRIMADOLE [Concomitant]
  11. PLAVIX [Concomitant]
  12. IRON [Concomitant]
  13. FISH OIL [Concomitant]
  14. LASIX [Concomitant]
  15. DILAUDID [Concomitant]
  16. LANTUS [Concomitant]
  17. LEVAQUIN [Concomitant]

REACTIONS (3)
  - DIARRHOEA [None]
  - HAEMATOCHEZIA [None]
  - INTERNATIONAL NORMALISED RATIO INCREASED [None]
